FAERS Safety Report 6060939-0 (Version None)
Quarter: 2009Q1

REPORT INFORMATION
  Report Type: 
  Country: None (occurrence: None)
  Receive Date: 20090202
  Receipt Date: 20090121
  Transmission Date: 20090719
  Serious: Yes (Other)
  Sender: FDA-Public Use
  Company Number: US-ROCHE-600110

PATIENT
  Sex: Male
  Weight: 81.6 kg

DRUGS (1)
  1. CAPECITABINE [Suspect]
     Indication: DRUG USE FOR UNKNOWN INDICATION
     Dosage: 9 DAYS ON, 7 DAYS OFF
     Route: 065
     Dates: start: 20070927, end: 20081114

REACTIONS (1)
  - METASTASES TO CENTRAL NERVOUS SYSTEM [None]
